FAERS Safety Report 23055220 (Version 1)
Quarter: 2023Q4

REPORT INFORMATION
  Report Type: Spontaneous
  Country: US (occurrence: None)
  Receive Date: 20231010
  Receipt Date: 20231010
  Transmission Date: 20240109
  Serious: Yes (Other)
  Sender: FDA-Public Use
  Company Number: None

PATIENT
  Sex: Male

DRUGS (15)
  1. NUCALA [Suspect]
     Active Substance: MEPOLIZUMAB
     Indication: Asthma
     Dosage: FREQUENCY : MONTHLY;?
     Route: 058
     Dates: start: 202310
  2. CHLORTHALIDONE [Concomitant]
     Active Substance: CHLORTHALIDONE
  3. GABAPENTIN [Concomitant]
     Active Substance: GABAPENTIN
  4. LOSARTAN POTASSIUM [Concomitant]
     Active Substance: LOSARTAN POTASSIUM
  5. MELANTONIN [Concomitant]
  6. METOPROL SUC TAB ER [Concomitant]
  7. MULTIVITAMIN TAB ADULTS [Concomitant]
  8. POTASSIUM [Concomitant]
     Active Substance: POTASSIUM
  9. ROSUVASTATIN [Concomitant]
     Active Substance: ROSUVASTATIN
  10. TRELEGY AER [Concomitant]
  11. VITAMIN C [Concomitant]
     Active Substance: ASCORBIC ACID
  12. VITAMIN D3 [Concomitant]
     Active Substance: CHOLECALCIFEROL
  13. VITAMIN E [Concomitant]
     Active Substance: .ALPHA.-TOCOPHEROL
  14. XHANCE MIS [Concomitant]
  15. ZINC [Concomitant]
     Active Substance: ZINC

REACTIONS (1)
  - Arthralgia [None]
